FAERS Safety Report 8451500-9 (Version None)
Quarter: 2012Q2

REPORT INFORMATION
  Report Type: 
  Country: None (occurrence: None)
  Receive Date: 20120620
  Receipt Date: 20120305
  Transmission Date: 20120825
  Serious: No
  Sender: FDA-Public Use
  Company Number: US-VERTEX PHARMACEUTICALS INC.-AE-2012-003169

PATIENT
  Sex: Male
  Weight: 84.898 kg

DRUGS (8)
  1. INCIVEK [Suspect]
     Indication: HEPATITIS C
     Route: 048
     Dates: start: 20111216, end: 20120302
  2. LEVOXYL [Concomitant]
     Route: 048
  3. MULTIPLE VITAMIN [Concomitant]
     Route: 048
  4. FISH OIL [Concomitant]
     Route: 048
  5. PEGASYS [Concomitant]
     Indication: HEPATITIS C
     Route: 058
     Dates: start: 20111216
  6. RIBAVIRIN [Concomitant]
     Indication: HEPATITIS C
     Route: 048
     Dates: start: 20111216, end: 20120224
  7. IBUPROFEN (ADVIL) [Concomitant]
     Route: 048
  8. RIBAVIRIN [Concomitant]
     Route: 048
     Dates: start: 20120225

REACTIONS (2)
  - INSOMNIA [None]
  - RASH PAPULAR [None]
